FAERS Safety Report 15555865 (Version 1)
Quarter: 2018Q4

REPORT INFORMATION
  Report Type: Spontaneous
  Country: US (occurrence: US)
  Receive Date: 20181026
  Receipt Date: 20181026
  Transmission Date: 20190205
  Serious: Yes (Death, Hospitalization)
  Sender: FDA-Public Use
  Company Number: US-MYLANLABS-2018M1078295

PATIENT
  Age: 22 Year
  Sex: Male

DRUGS (10)
  1. DEXTROSE. [Suspect]
     Active Substance: DEXTROSE
     Indication: CARDIOTOXICITY
     Route: 050
  2. INSULIN [Suspect]
     Active Substance: INSULIN NOS
     Indication: CARDIOTOXICITY
     Route: 050
  3. DOPAMINE [Suspect]
     Active Substance: DOPAMINE\DOPAMINE HYDROCHLORIDE
     Indication: CARDIAC ARREST
     Route: 050
  4. SODIUM BICARBONATE. [Suspect]
     Active Substance: SODIUM BICARBONATE
     Indication: CARDIOTOXICITY
     Route: 065
  5. OTHER THERAPEUTIC PRODUCTS [Suspect]
     Active Substance: UNSPECIFIED INGREDIENT
     Indication: CARDIOTOXICITY
     Dosage: FIRST FIVE VIALS CONTAINING 200MG WERE ADMINISTERED
     Route: 065
  6. OTHER THERAPEUTIC PRODUCTS [Suspect]
     Active Substance: UNSPECIFIED INGREDIENT
     Dosage: FIVE VIALS CONTAINING 200MG WERE ADMINISTERED
     Route: 065
  7. OTHER THERAPEUTIC PRODUCTS [Suspect]
     Active Substance: UNSPECIFIED INGREDIENT
     Dosage: TEN VIALS
     Route: 065
  8. ATROPINE. [Suspect]
     Active Substance: ATROPINE
     Indication: CARDIOTOXICITY
     Route: 065
  9. FAT EMULSION NOS [Suspect]
     Active Substance: EGG PHOSPHOLIPIDS\SAFFLOWER OIL\SOYBEAN OIL
     Indication: CARDIOTOXICITY
     Route: 065
  10. NOREPINEPHRINE. [Suspect]
     Active Substance: NOREPINEPHRINE
     Indication: CARDIAC ARREST
     Route: 050

REACTIONS (1)
  - Drug ineffective [Fatal]
